FAERS Safety Report 8163572-X (Version None)
Quarter: 2012Q1

REPORT INFORMATION
  Report Type: 
  Country: None (occurrence: None)
  Receive Date: 20120224
  Receipt Date: 20120214
  Transmission Date: 20120608
  Serious: Yes (Hospitalization)
  Sender: FDA-Public Use
  Company Number: US-JNJFOC-20120207211

PATIENT
  Sex: Female

DRUGS (6)
  1. LIPITOR [Concomitant]
  2. HYDROCHLOROTHIAZIDE [Concomitant]
  3. MELOXICAM [Concomitant]
  4. LEVOTHYROXINE SODIUM [Concomitant]
  5. RAMIPRIL [Concomitant]
  6. XARELTO [Suspect]
     Indication: KNEE ARTHROPLASTY
     Route: 065
     Dates: start: 20120119, end: 20120131

REACTIONS (6)
  - RED BLOOD CELL SEDIMENTATION RATE INCREASED [None]
  - C-REACTIVE PROTEIN INCREASED [None]
  - INFECTION [None]
  - BACTERIAL TEST POSITIVE [None]
  - INCISIONAL DRAINAGE [None]
  - HAEMATOMA [None]
